FAERS Safety Report 10182304 (Version 2)
Quarter: 2014Q2

REPORT INFORMATION
  Report Type: Spontaneous
  Country: CA (occurrence: CA)
  Receive Date: 20140520
  Receipt Date: 20140605
  Transmission Date: 20141212
  Serious: Yes (Hospitalization)
  Sender: FDA-Public Use
  Company Number: CA-BRISTOL-MYERS SQUIBB COMPANY-20734430

PATIENT
  Age: 60 Year
  Sex: Female

DRUGS (8)
  1. ABATACEPT SUBQ INJECTION 125MG/ML [Suspect]
     Indication: RHEUMATOID ARTHRITIS
     Route: 058
     Dates: start: 20140411
  2. FUROSEMIDE [Concomitant]
     Dosage: 40MG
     Route: 048
  3. SPIRONOLACTONE [Concomitant]
     Route: 048
  4. DIGOXIN [Concomitant]
     Route: 048
  5. FOLIC ACID [Concomitant]
     Route: 048
  6. RISEDRONATE SODIUM [Concomitant]
     Route: 048
  7. WARFARIN [Concomitant]
     Dosage: 1.5MG
  8. METOPROLOL [Concomitant]
     Route: 048

REACTIONS (1)
  - Cardiac failure [Not Recovered/Not Resolved]
